FAERS Safety Report 7115350-8 (Version None)
Quarter: 2010Q4

REPORT INFORMATION
  Report Type: 
  Country: None (occurrence: None)
  Receive Date: 20101122
  Receipt Date: 20101116
  Transmission Date: 20110411
  Serious: Yes (Hospitalization, Other)
  Sender: FDA-Public Use
  Company Number: FR-BRISTOL-MYERS SQUIBB COMPANY-15393549

PATIENT
  Age: 60 Year
  Sex: Female

DRUGS (8)
  1. ABILIFY [Suspect]
     Indication: BIPOLAR I DISORDER
     Dates: start: 20100501, end: 20101027
  2. DEPAKOTE [Suspect]
     Dosage: DOSE REDUCED TO 250MG BID
  3. LEPTICUR [Suspect]
     Dates: end: 20101104
  4. PAROXETINE HCL [Suspect]
     Route: 048
     Dates: end: 20101104
  5. NOCTRAN [Suspect]
     Dosage: 1DF:1 UNIT NOS AT EVENING
     Route: 048
     Dates: end: 20101104
  6. SULFARLEM [Suspect]
     Dates: end: 20101104
  7. VALIUM [Suspect]
     Dates: end: 20101104
  8. THERALENE [Concomitant]
     Dosage: AT EVENING

REACTIONS (3)
  - EXTRAPYRAMIDAL DISORDER [None]
  - NEPHRITIS ALLERGIC [None]
  - RENAL FAILURE ACUTE [None]
